FAERS Safety Report 8077109-7 (Version None)
Quarter: 2012Q1

REPORT INFORMATION
  Report Type: 
  Country: None (occurrence: None)
  Receive Date: 20120127
  Receipt Date: 20120120
  Transmission Date: 20120608
  Serious: Yes (Hospitalization, Other)
  Sender: FDA-Public Use
  Company Number: PHEH2012US001941

PATIENT
  Sex: Male
  Weight: 70.295 kg

DRUGS (1)
  1. GILENYA [Suspect]
     Indication: RELAPSING-REMITTING MULTIPLE SCLEROSIS
     Dosage: 0.5 MG, QD
     Route: 048
     Dates: start: 20110301

REACTIONS (6)
  - APHASIA [None]
  - POSTICTAL STATE [None]
  - TONGUE BITING [None]
  - FATIGUE [None]
  - CONFUSIONAL STATE [None]
  - GRAND MAL CONVULSION [None]
